FAERS Safety Report 4454602-7 (Version None)
Quarter: 2004Q3

REPORT INFORMATION
  Report Type: 
  Country: None (occurrence: None)
  Receive Date: 20040921
  Receipt Date: 20040629
  Transmission Date: 20050211
  Serious: Yes (Life-Threatening)
  Sender: FDA-Public Use
  Company Number: 200412231JP

PATIENT
  Age: 72 Year
  Sex: Female
  Weight: 53.2 kg

DRUGS (14)
  1. LASIX [Suspect]
     Dosage: DOSE: 1/2A
     Route: 042
     Dates: start: 20040607, end: 20040609
  2. ARICEPT [Concomitant]
     Indication: DEMENTIA
  3. GLIMICRON [Concomitant]
     Indication: DIABETES MELLITUS
  4. PANTOSIN [Concomitant]
     Indication: DEPRESSION
  5. ANAFRANIL [Concomitant]
     Indication: DEPRESSION
  6. HALOPERIDOL [Concomitant]
     Indication: DEPRESSION
  7. DEPAS [Concomitant]
     Indication: DEPRESSION
  8. AKINETON [Concomitant]
     Indication: DEPRESSION
  9. AKINETON [Concomitant]
     Indication: PROPHYLAXIS
  10. BUFFERIN [Concomitant]
     Indication: CARDIAC FAILURE
     Dates: start: 20040608
  11. BUFFERIN [Concomitant]
     Indication: THROMBOSIS PROPHYLAXIS
     Dates: start: 20040608
  12. RENIVEZE                                /JPN/ [Concomitant]
     Dates: start: 20040608
  13. FLUITRAN [Concomitant]
     Dates: start: 20040611
  14. ALDACTONE-A [Concomitant]
     Dates: start: 20040614

REACTIONS (6)
  - ANAPHYLACTIC SHOCK [None]
  - CARDIAC FAILURE [None]
  - CONDITION AGGRAVATED [None]
  - DYSPNOEA [None]
  - RASH [None]
  - STRIDOR [None]
